FAERS Safety Report 4367137-7 (Version None)
Quarter: 2004Q2

REPORT INFORMATION
  Report Type: 
  Country: None (occurrence: None)
  Receive Date: 20040528
  Receipt Date: 20040519
  Transmission Date: 20050107
  Serious: Yes (Hospitalization)
  Sender: FDA-Public Use
  Company Number: FR-GLAXOSMITHKLINE-B0333355A

PATIENT
  Age: 80 Year
  Sex: Female

DRUGS (6)
  1. DEROXAT [Suspect]
     Indication: ILL-DEFINED DISORDER
     Dosage: 20MG PER DAY
     Route: 048
  2. ARICEPT [Suspect]
     Indication: DEMENTIA ALZHEIMER'S TYPE
     Dosage: 10MG PER DAY
     Route: 048
  3. FLUDROCORTISONE ACETATE [Suspect]
     Indication: ORTHOSTATIC HYPOTENSION
     Dosage: .5UNIT PER DAY
     Route: 048
  4. CLOZAPINE [Suspect]
     Indication: ILL-DEFINED DISORDER
     Dosage: 25MG PER DAY
     Route: 048
  5. SINEMET [Concomitant]
     Indication: DEMENTIA ALZHEIMER'S TYPE
     Dosage: 5UNIT PER DAY
     Route: 048
  6. GUTRON [Concomitant]
     Indication: ORTHOSTATIC HYPOTENSION
     Dosage: 15MG PER DAY
     Route: 048

REACTIONS (1)
  - FALL [None]
